FAERS Safety Report 16010263 (Version 1)
Quarter: 2019Q1

REPORT INFORMATION
  Report Type: Spontaneous
  Country: ES (occurrence: ES)
  Receive Date: 20190227
  Receipt Date: 20190227
  Transmission Date: 20190418
  Serious: Yes (Other)
  Sender: FDA-Public Use
  Company Number: ES-TEVA-2019-ES-1015638

PATIENT
  Age: 91 Year
  Sex: Female

DRUGS (3)
  1. LISINOPRIL (2222A) [Suspect]
     Active Substance: LISINOPRIL
     Route: 065
     Dates: start: 2017
  2. NORVAS 10 MG COMPRIMIDOS, 30 COMPRIMIDOS [Concomitant]
  3. PREVENCOR 20 MG COMPRIMIDOS MASTICABLES, 30 COMPRIMIDOS [Concomitant]
     Active Substance: ATORVASTATIN CALCIUM

REACTIONS (2)
  - Hyperkalaemia [Recovered/Resolved]
  - Electrocardiogram T wave peaked [Recovered/Resolved]

NARRATIVE: CASE EVENT DATE: 20180608
